FAERS Safety Report 9999252 (Version 1)
Quarter: 2014Q1

REPORT INFORMATION
  Report Type: Spontaneous
  Country: GB (occurrence: None)
  Receive Date: 20140310
  Receipt Date: 20140310
  Transmission Date: 20141002
  Serious: Yes (Life-Threatening, Disabling)
  Sender: FDA-Public Use
  Company Number: B0972889A

PATIENT
  Sex: Female

DRUGS (1)
  1. PAROXETINE HYDROCHLORIDE (FORMULATION UNKNOWN) (PAROXETINE HYDROCHLORIDE) [Suspect]
     Indication: CHRONIC FATIGUE SYNDROME
     Route: 048

REACTIONS (9)
  - Suicidal ideation [None]
  - Drug dependence [None]
  - Anxiety [None]
  - Hyperhidrosis [None]
  - Drug withdrawal syndrome [None]
  - Sleep disorder [None]
  - Cognitive disorder [None]
  - Vomiting [None]
  - Headache [None]
